FAERS Safety Report 15982262 (Version 1)
Quarter: 2019Q1

REPORT INFORMATION
  Report Type: Spontaneous
  Country: FR (occurrence: FR)
  Receive Date: 20190219
  Receipt Date: 20190219
  Transmission Date: 20190418
  Serious: Yes (Other)
  Sender: FDA-Public Use
  Company Number: FR-009507513-1902FRA005396

PATIENT
  Age: 70 Year
  Sex: Male
  Weight: 81 kg

DRUGS (4)
  1. KEYTRUDA [Suspect]
     Active Substance: PEMBROLIZUMAB
     Indication: LUNG ADENOCARCINOMA
     Dosage: UNK
     Route: 042
     Dates: start: 201804, end: 201808
  2. AVASTIN (ATORVASTATIN CALCIUM) [Suspect]
     Active Substance: ATORVASTATIN CALCIUM
     Indication: ADENOCARCINOMA OF COLON
     Dosage: UNK
     Route: 042
     Dates: start: 20180810
  3. LYRICA [Suspect]
     Active Substance: PREGABALIN
     Indication: NEUROPATHY PERIPHERAL
     Dosage: 150 MILLIGRAM, QD
     Route: 048
     Dates: start: 201803
  4. CAMPTO [Suspect]
     Active Substance: IRINOTECAN
     Indication: ADENOCARCINOMA OF COLON
     Dosage: UNK
     Route: 042
     Dates: start: 20180810, end: 20181130

REACTIONS (4)
  - Dry mouth [Recovering/Resolving]
  - Dysphagia [Not Recovered/Not Resolved]
  - Aphthous ulcer [Recovering/Resolving]
  - Mucosal inflammation [Not Recovered/Not Resolved]

NARRATIVE: CASE EVENT DATE: 201810
